FAERS Safety Report 10267053 (Version 1)
Quarter: 2014Q2

REPORT INFORMATION
  Report Type: Spontaneous
  Country: US (occurrence: US)
  Receive Date: 20140630
  Receipt Date: 20140630
  Transmission Date: 20141212
  Serious: No
  Sender: FDA-Public Use
  Company Number: US-SHIRE-US201403402

PATIENT
  Sex: Female
  Weight: 58.96 kg

DRUGS (9)
  1. LIALDA [Suspect]
     Indication: COLITIS ULCERATIVE
     Dosage: 2.4 G (TWO 1.2 G), OTHER (ONCE DAILY TAKEN MON-FRI SPORADICALLY)
     Route: 048
     Dates: start: 2008, end: 2011
  2. LIALDA [Suspect]
     Dosage: 2.4 MG (TWO 1.2 G), 1X/DAY:QD
     Route: 048
     Dates: start: 2011, end: 2011
  3. LIALDA [Suspect]
     Dosage: 2.4 G (TWO 1.2 G), 1X/DAY:QD
     Route: 048
     Dates: start: 2008, end: 2010
  4. LIALDA [Suspect]
     Dosage: 3.6 G (THREE 1.2 G), 1X/DAY:QD
     Route: 048
     Dates: start: 2011
  5. LIALDA [Suspect]
     Dosage: 3.6 G (THREE 1.2 G) OTHER (ONCE DAILY TAKEN MON-FRI SPORADICALLY)
     Route: 048
     Dates: start: 2011
  6. FISH OIL [Concomitant]
     Indication: PRODUCT USED FOR UNKNOWN INDICATION
     Dosage: 3 DF, 1X/DAY:QD
     Route: 048
     Dates: start: 1986
  7. CENTRUM                            /02267801/ [Concomitant]
     Indication: VITAMIN SUPPLEMENTATION
     Dosage: 1 DF, 1X/DAY:QD
     Route: 048
     Dates: start: 1986
  8. VITAMIN C                          /00008001/ [Concomitant]
     Indication: PRODUCT USED FOR UNKNOWN INDICATION
     Dosage: 1 DF, 1X/DAY:QD
     Route: 048
     Dates: start: 2002
  9. OTHER VITAMIN PRODUCTS, COMBINATIONS [Concomitant]
     Indication: MINERAL SUPPLEMENTATION
     Dosage: 1 DF, UNKNOWN
     Route: 048
     Dates: start: 2011

REACTIONS (5)
  - Haematochezia [Not Recovered/Not Resolved]
  - Inappropriate schedule of drug administration [Not Recovered/Not Resolved]
  - Treatment noncompliance [Not Recovered/Not Resolved]
  - Wrong technique in drug usage process [Not Recovered/Not Resolved]
  - Drug ineffective [Not Recovered/Not Resolved]
